FAERS Safety Report 8429030-X (Version None)
Quarter: 2012Q2

REPORT INFORMATION
  Report Type: 
  Country: None (occurrence: None)
  Receive Date: 20120612
  Receipt Date: 20120604
  Transmission Date: 20120825
  Serious: Yes (Hospitalization)
  Sender: FDA-Public Use
  Company Number: US-BAYER-2012-002414

PATIENT
  Age: 29 Year
  Sex: Female
  Weight: 81.633 kg

DRUGS (4)
  1. DROSPIRENONE AND ETHINYL ESTRADIOL [Suspect]
     Indication: CONTRACEPTION
     Dosage: UNK
     Dates: start: 20061001, end: 20090601
  2. YASMIN [Suspect]
     Indication: CONTRACEPTION
     Dosage: UNK
     Dates: start: 20061001, end: 20090601
  3. VICODIN [Concomitant]
     Dosage: 5-500 MG
     Route: 048
  4. PRENATAL /02195401/ [Concomitant]
     Dosage: 10-400 MG/MCG
     Route: 048

REACTIONS (6)
  - GALLBLADDER DISORDER [None]
  - CHOLECYSTITIS CHRONIC [None]
  - FEAR [None]
  - PAIN [None]
  - MENTAL DISORDER [None]
  - INJURY [None]
